FAERS Safety Report 5124804-5 (Version None)
Quarter: 2006Q4

REPORT INFORMATION
  Report Type: 
  Country: None (occurrence: None)
  Receive Date: 20061011
  Receipt Date: 20061003
  Transmission Date: 20070319
  Serious: Yes (Other)
  Sender: FDA-Public Use
  Company Number: US-AVENTIS-200618258US

PATIENT
  Age: 74 Year
  Sex: Female

DRUGS (5)
  1. LANTUS [Suspect]
     Indication: DIABETES MELLITUS NON-INSULIN-DEPENDENT
  2. LOVASTATIN [Concomitant]
     Dosage: DOSE: UNK
  3. DIOVAN                             /01319601/ [Concomitant]
     Dosage: DOSE: UNK
  4. TRAZODONE HCL [Concomitant]
     Dosage: DOSE: UNK
  5. VITAMINS (LOTS OF) [Concomitant]
     Dosage: DOSE: UNK

REACTIONS (2)
  - DIABETIC RETINOPATHY [None]
  - VISUAL ACUITY REDUCED [None]
